FAERS Safety Report 21450517 (Version 1)
Quarter: 2022Q4

REPORT INFORMATION
  Report Type: Spontaneous
  Country: FR (occurrence: FR)
  Receive Date: 20221013
  Receipt Date: 20221013
  Transmission Date: 20230113
  Serious: Yes (Hospitalization)
  Sender: FDA-Public Use
  Company Number: None

PATIENT
  Sex: Female
  Weight: 1.59 kg

DRUGS (6)
  1. ESOMEPRAZOLE [Suspect]
     Active Substance: ESOMEPRAZOLE
     Indication: Duodenogastric reflux
     Dosage: 15 MILLIGRAM, QD
     Route: 064
  2. ENOXAPARIN SODIUM [Suspect]
     Active Substance: ENOXAPARIN SODIUM
     Indication: Thrombosis prophylaxis
     Dosage: 40 MILLIGRAM, QD
     Route: 064
  3. ASPIRIN [Suspect]
     Active Substance: ASPIRIN
     Indication: Hidradenitis
     Dosage: 100 MILLIGRAM, QD
     Route: 064
     Dates: start: 20201008
  4. PREDNISONE [Suspect]
     Active Substance: PREDNISONE
     Indication: Hidradenitis
     Dosage: 20 MILLIGRAM, QD
     Route: 064
     Dates: start: 20201008, end: 20210424
  5. COLCHICINE [Suspect]
     Active Substance: COLCHICINE
     Indication: Hidradenitis
     Dosage: 1 MILLIGRAM, QD
     Route: 064
     Dates: start: 20201008, end: 20210424
  6. CIMZIA [Suspect]
     Active Substance: CERTOLIZUMAB PEGOL
     Indication: Hidradenitis
     Dosage: 400 MILLIGRAM, BIWEEKLY (2 WEEK)
     Route: 064
     Dates: start: 20201008, end: 20210406

REACTIONS (2)
  - Premature baby [Recovered/Resolved]
  - Foetal exposure during pregnancy [Unknown]

NARRATIVE: CASE EVENT DATE: 20210424
